FAERS Safety Report 6298157-3 (Version None)
Quarter: 2009Q3

REPORT INFORMATION
  Report Type: 
  Country: None (occurrence: None)
  Receive Date: 20090805
  Receipt Date: 20090727
  Transmission Date: 20100115
  Serious: Yes (Hospitalization, Disabling, Other)
  Sender: FDA-Public Use
  Company Number: US-MERCK-0808USA01973

PATIENT
  Age: 64 Year
  Sex: Female
  Weight: 59 kg

DRUGS (6)
  1. FOSAMAX [Suspect]
     Indication: OSTEOPOROSIS
     Route: 048
     Dates: start: 19961101, end: 20000101
  2. FOSAMAX [Suspect]
     Route: 048
     Dates: start: 20010201, end: 20061201
  3. CORTICOSTEROIDS (UNSPECIFIED) [Concomitant]
     Route: 065
     Dates: start: 19750101
  4. [THERAPY UNSPECIFIED] [Concomitant]
     Indication: DIABETES MELLITUS
     Route: 065
     Dates: start: 19900101
  5. BRETHINE [Concomitant]
     Indication: ASTHMA
     Route: 065
     Dates: start: 19880101
  6. THEOPHYLLINE [Concomitant]
     Indication: ASTHMA
     Route: 065
     Dates: start: 19880101

REACTIONS (44)
  - ABDOMINAL PAIN [None]
  - ABSCESS [None]
  - ACQUIRED OESOPHAGEAL WEB [None]
  - ANXIETY [None]
  - ASTHMA [None]
  - BLOOD POTASSIUM DECREASED [None]
  - BRUXISM [None]
  - BUNION [None]
  - CHRONIC OBSTRUCTIVE PULMONARY DISEASE [None]
  - CONSTIPATION [None]
  - DEHYDRATION [None]
  - DENTAL CARIES [None]
  - DEPRESSION [None]
  - DRY MOUTH [None]
  - DUODENITIS [None]
  - FISTULA [None]
  - FOOT DEFORMITY [None]
  - GASTRIC ATONY [None]
  - GASTROENTERITIS VIRAL [None]
  - GASTROOESOPHAGEAL REFLUX DISEASE [None]
  - GINGIVITIS [None]
  - GLUCOSE TOLERANCE IMPAIRED [None]
  - HEADACHE [None]
  - HYPERGLYCAEMIA [None]
  - HYPERTENSION [None]
  - HYPOTHYROIDISM [None]
  - HYPOXIA [None]
  - IMPAIRED HEALING [None]
  - INCISIONAL DRAINAGE [None]
  - INFECTION [None]
  - IRON DEFICIENCY ANAEMIA [None]
  - JAW DISORDER [None]
  - JAW FRACTURE [None]
  - JOINT INSTABILITY [None]
  - MASS [None]
  - NAUSEA [None]
  - OESOPHAGITIS [None]
  - OSTEOMYELITIS [None]
  - OSTEONECROSIS [None]
  - PNEUMONIA [None]
  - SELF ESTEEM DECREASED [None]
  - SINUSITIS [None]
  - UTERINE PROLAPSE [None]
  - VOMITING [None]
